FAERS Safety Report 8408312-1 (Version None)
Quarter: 2012Q2

REPORT INFORMATION
  Report Type: 
  Country: None (occurrence: None)
  Receive Date: 20120604
  Receipt Date: 20120521
  Transmission Date: 20120825
  Serious: No
  Sender: FDA-Public Use
  Company Number: US-ASTRAZENECA-2012SE15002

PATIENT
  Sex: Male

DRUGS (4)
  1. LORTAB [Concomitant]
  2. LIPITOR [Concomitant]
  3. ZOMIG-ZMT [Suspect]
     Indication: MIGRAINE
     Route: 048
  4. AMBIEN [Concomitant]

REACTIONS (1)
  - PHARYNGEAL HYPOAESTHESIA [None]
